FAERS Safety Report 6664195-1 (Version None)
Quarter: 2010Q2

REPORT INFORMATION
  Report Type: 
  Country: None (occurrence: None)
  Receive Date: 20100401
  Receipt Date: 20100323
  Transmission Date: 20101027
  Serious: Yes (Death, Hospitalization)
  Sender: FDA-Public Use
  Company Number: DK-PFIZER INC-2008101092

PATIENT
  Age: 58 Year
  Sex: Male
  Weight: 74 kg

DRUGS (8)
  1. ZARATOR [Suspect]
     Dosage: UNK MG, UNK
     Route: 048
     Dates: start: 20020101, end: 20080828
  2. ZOCOR [Concomitant]
     Indication: HYPERLIPIDAEMIA
     Dosage: 40 MG, 1X/DAY
     Route: 048
     Dates: start: 20080801
  3. OXYCONTIN [Concomitant]
     Dosage: 10 MG, 2X/DAY
     Route: 048
  4. PAMOL [Concomitant]
     Dosage: 1000 MG, 4X/DAY
  5. DIMITONE [Concomitant]
     Dosage: 3.125MG DAILY
     Route: 048
  6. MAGNYL ^DAK^ [Concomitant]
     Dosage: 75 MG, 1X/DAY
     Route: 048
  7. PLAVIX [Concomitant]
     Dosage: 75 MG, 1X/DAY
     Route: 048
  8. TRIATEC [Concomitant]
     Dosage: 2.5 MG, 1X/DAY
     Route: 048

REACTIONS (2)
  - MULTI-ORGAN FAILURE [None]
  - PANCREATITIS [None]
